FAERS Safety Report 11340837 (Version 1)
Quarter: 2015Q3

REPORT INFORMATION
  Report Type: Spontaneous
  Country: NZ (occurrence: NZ)
  Receive Date: 20150805
  Receipt Date: 20150805
  Transmission Date: 20151125
  Serious: Yes (Other)
  Sender: FDA-Public Use
  Company Number: PHHY2015NZ091839

PATIENT
  Age: 66 Year
  Sex: Male

DRUGS (5)
  1. CARBIMAZOLE [Suspect]
     Active Substance: CARBIMAZOLE
     Indication: PRODUCT USED FOR UNKNOWN INDICATION
     Dosage: 10 MG, BID
     Route: 065
  2. ATORVASTATIN [Suspect]
     Active Substance: ATORVASTATIN
     Indication: PRODUCT USED FOR UNKNOWN INDICATION
     Dosage: 10 MG, QD (AT NIGHT)
     Route: 065
  3. CARTIA//ACETYLSALICYLIC ACID [Suspect]
     Active Substance: ASPIRIN
     Indication: PRODUCT USED FOR UNKNOWN INDICATION
     Dosage: 100 MG, QD
     Route: 065
  4. FLUOXETINE [Suspect]
     Active Substance: FLUOXETINE\FLUOXETINE HYDROCHLORIDE
     Indication: PRODUCT USED FOR UNKNOWN INDICATION
     Dosage: 20 MG, QD
     Route: 065
  5. METFORMIN [Suspect]
     Active Substance: METFORMIN HYDROCHLORIDE
     Indication: PRODUCT USED FOR UNKNOWN INDICATION
     Dosage: 1 G, BID
     Route: 065

REACTIONS (21)
  - Metastases to small intestine [Unknown]
  - Platelet count increased [Unknown]
  - Globulins increased [Unknown]
  - Metastases to pancreas [Unknown]
  - Metastases to bone [Unknown]
  - Lymphadenopathy [Unknown]
  - Spinal compression fracture [Unknown]
  - Metastases to the mediastinum [Unknown]
  - Metastases to liver [Unknown]
  - Metastatic malignant melanoma [Unknown]
  - Metastases to spleen [Unknown]
  - Splenic haemorrhage [Unknown]
  - C-reactive protein increased [Unknown]
  - Haematocrit decreased [Unknown]
  - Mean cell haemoglobin decreased [Unknown]
  - Red cell distribution width increased [Unknown]
  - Tumour invasion [Unknown]
  - Blood albumin decreased [Unknown]
  - Metastases to lung [Unknown]
  - Goitre [Unknown]
  - Haemoglobin decreased [Unknown]

NARRATIVE: CASE EVENT DATE: 20150529
